FAERS Safety Report 11061982 (Version 2)
Quarter: 2015Q2

REPORT INFORMATION
  Report Type: Spontaneous
  Country: US (occurrence: US)
  Receive Date: 20150424
  Receipt Date: 20150515
  Transmission Date: 20150821
  Serious: Yes (Life-Threatening, Hospitalization)
  Sender: FDA-Public Use
  Company Number: US-009507513-1504USA017134

PATIENT
  Age: 24 Year
  Sex: Female
  Weight: 65.31 kg

DRUGS (4)
  1. NUVARING [Suspect]
     Active Substance: ETHINYL ESTRADIOL\ETONOGESTREL
     Indication: PELVIC PAIN
  2. LORAZEPAM. [Concomitant]
     Active Substance: LORAZEPAM
     Dosage: UNKNOWN
  3. NUVARING [Suspect]
     Active Substance: ETHINYL ESTRADIOL\ETONOGESTREL
     Indication: CONTRACEPTION
     Dosage: UNK
     Route: 067
     Dates: start: 20141214, end: 2015
  4. NUVARING [Suspect]
     Active Substance: ETHINYL ESTRADIOL\ETONOGESTREL
     Indication: DYSMENORRHOEA

REACTIONS (9)
  - Chorea [Unknown]
  - Head discomfort [Recovering/Resolving]
  - Headache [Unknown]
  - Blood heavy metal increased [Unknown]
  - Therapeutic response unexpected [Unknown]
  - Drug administration error [Unknown]
  - Gait disturbance [Recovering/Resolving]
  - Galactorrhoea [Unknown]
  - Tremor [Recovering/Resolving]

NARRATIVE: CASE EVENT DATE: 20150214
